FAERS Safety Report 5018537-3 (Version None)
Quarter: 2006Q2

REPORT INFORMATION
  Report Type: 
  Country: None (occurrence: None)
  Receive Date: 20060414
  Receipt Date: 20051223
  Transmission Date: 20061013
  Serious: No
  Sender: FDA-Public Use
  Company Number: 2005SP004512

PATIENT
  Age: 57 Year
  Sex: Male
  Weight: 75.7507 kg

DRUGS (9)
  1. LUNESTA [Suspect]
     Indication: INSOMNIA
     Dosage: SEE IMAGE
     Route: 048
     Dates: start: 20050901, end: 20051101
  2. LUNESTA [Suspect]
     Indication: INSOMNIA
     Dosage: SEE IMAGE
     Route: 048
     Dates: start: 20051101, end: 20051201
  3. LUNESTA [Suspect]
     Indication: INSOMNIA
     Dosage: SEE IMAGE
     Route: 048
     Dates: start: 20051201
  4. ZYRTEC [Concomitant]
  5. BACTRIM DS [Concomitant]
  6. TRUVADA [Concomitant]
  7. LEXIVA [Concomitant]
  8. OXYCODONE HCL [Concomitant]
  9. MULTIVITAMIN [Concomitant]

REACTIONS (1)
  - DRUG EFFECT DECREASED [None]
